FAERS Safety Report 5192319-4 (Version None)
Quarter: 2006Q4

REPORT INFORMATION
  Report Type: 
  Country: None (occurrence: None)
  Receive Date: 20061220
  Receipt Date: 20061207
  Transmission Date: 20070319
  Serious: Yes (Death)
  Sender: FDA-Public Use
  Company Number: 233299

PATIENT
  Age: 55 Year
  Sex: Male
  Weight: 73 kg

DRUGS (10)
  1. BEVACIZUMAB (BEVACIZUMAB) PWDR + SOLVENT, INFUSION SOLN, 100MG [Suspect]
     Indication: NON-SMALL CELL LUNG CANCER
     Dosage: 15 MG/KG, Q3W, INTRAVENOUS
     Route: 042
     Dates: start: 20060725, end: 20061114
  2. CARBOPLATIN [Suspect]
     Indication: NON-SMALL CELL LUNG CANCER
     Dosage: 1/WEEK,
  3. PACLITAXEL [Suspect]
     Indication: NON-SMALL CELL LUNG CANCER
     Dosage: 1/WEEK,
  4. LIPITOR [Concomitant]
  5. LISINOPRIL [Concomitant]
  6. NICORETTE GUM (NICOTINE POLACRILEX) [Concomitant]
  7. ADVAIR DISKUS 100/50 [Concomitant]
  8. PRILOSEC [Concomitant]
  9. ROXICET [Concomitant]
  10. WELLBUTRIN [Concomitant]

REACTIONS (3)
  - PLATELET COUNT DECREASED [None]
  - PULMONARY CAVITATION [None]
  - PULMONARY HAEMORRHAGE [None]
